FAERS Safety Report 4469393-3 (Version None)
Quarter: 2004Q4

REPORT INFORMATION
  Report Type: 
  Country: None (occurrence: None)
  Receive Date: 20041008
  Receipt Date: 20040504
  Transmission Date: 20050328
  Serious: Yes (Hospitalization)
  Sender: FDA-Public Use
  Company Number: US-BRISTOL-MYERS SQUIBB COMPANY-12583480

PATIENT
  Age: 82 Year
  Sex: Female

DRUGS (6)
  1. AVAPRO [Suspect]
     Route: 048
  2. CARDIZEM [Concomitant]
     Route: 048
  3. SOTALOL HCL [Concomitant]
  4. CLONIDINE HCL [Concomitant]
     Route: 062
  5. DYNACIRC [Concomitant]
  6. ALPRAZOLAM [Concomitant]

REACTIONS (4)
  - DEPRESSION [None]
  - DRY MOUTH [None]
  - HYPERTENSION [None]
  - INSOMNIA [None]
